FAERS Safety Report 6538062-8 (Version None)
Quarter: 2010Q1

REPORT INFORMATION
  Report Type: 
  Country: None (occurrence: None)
  Receive Date: 20100111
  Receipt Date: 20091224
  Transmission Date: 20100710
  Serious: Yes (Death)
  Sender: FDA-Public Use
  Company Number: THYM-1001257

PATIENT
  Age: 24 Year
  Sex: Female
  Weight: 57 kg

DRUGS (14)
  1. THYMOGLOBULINE     (ANTI-THYMOCYTE GLOBULIN (RABBIT)) POWDER FOR [Suspect]
     Indication: BONE MARROW CONDITIONING REGIMEN
     Dosage: 60 MG, QD, INTRAVENOUS
     Route: 042
     Dates: start: 20090827, end: 20090830
  2. THYMOGLOBULINE     (ANTI-THYMOCYTE GLOBULIN (RABBIT)) POWDER FOR [Suspect]
     Indication: STEM CELL TRANSPLANT
     Dosage: 60 MG, QD, INTRAVENOUS
     Route: 042
     Dates: start: 20090827, end: 20090830
  3. FLUDARABINE PHOSPHATE [Concomitant]
  4. CYCLOPHOSPHAMIDE [Concomitant]
  5. HYDROCORTISONE SODIUM PHOSPHATE   (HYDROCORTISONE SODIUM PHOSPHATE) [Concomitant]
  6. TACROLIMUS [Concomitant]
  7. METHOTREXATE [Concomitant]
  8. VORICONAZOLE [Concomitant]
  9. UNKNOWN DRUG [Concomitant]
  10. ACYCLOVIR [Concomitant]
  11. MEROPENEM [Concomitant]
  12. VANCOMYCIN HYDROCHLORIDE [Concomitant]
  13. FILGRASTIM (FILGRASTIM) [Concomitant]
  14. DORIPENEM HYDRATE (DORIPENEM HYDRATE) [Concomitant]

REACTIONS (2)
  - CEREBRAL HAEMORRHAGE [None]
  - STEM CELL TRANSPLANT [None]
